FAERS Safety Report 18401590 (Version 4)
Quarter: 2021Q1

REPORT INFORMATION
  Report Type: Report from Study
  Country: JP (occurrence: JP)
  Receive Date: 20201020
  Receipt Date: 20210106
  Transmission Date: 20210419
  Serious: Yes (Hospitalization)
  Sender: FDA-Public Use
  Company Number: JP-RECORDATI RARE DISEASES-2092936

PATIENT
  Age: 21 Year
  Sex: Female
  Weight: 45 kg

DRUGS (14)
  1. CARBAGLU [Suspect]
     Active Substance: CARGLUMIC ACID
     Route: 048
     Dates: start: 20200220
  2. CARBAGLU [Suspect]
     Active Substance: CARGLUMIC ACID
     Dates: start: 20201207
  3. TAURINE [Concomitant]
     Active Substance: TAURINE
     Route: 048
  4. VITAMEDIN [Concomitant]
     Active Substance: CYANOCOBALAMIN\PYRIDOXINE HYDROCHLORIDE\THIAMINE
     Route: 048
  5. PROGRAF [Concomitant]
     Active Substance: TACROLIMUS
     Route: 048
  6. URSODEOXYCHOLIC ACID [Concomitant]
     Active Substance: URSODIOL
     Route: 048
  7. CARBAGLU [Suspect]
     Active Substance: CARGLUMIC ACID
     Indication: METHYLMALONIC ACIDURIA
     Route: 048
     Dates: start: 20191021, end: 20200116
  8. VICCLOX [ACICLOVIR] [Concomitant]
     Active Substance: ACYCLOVIR
     Route: 048
  9. NEXIUM [Concomitant]
     Active Substance: ESOMEPRAZOLE MAGNESIUM
     Route: 048
  10. TEPRENONE [Concomitant]
     Active Substance: TEPRENONE
     Route: 048
  11. CARBAGLU [Suspect]
     Active Substance: CARGLUMIC ACID
     Dates: start: 20201027
  12. CARBAGLU [Suspect]
     Active Substance: CARGLUMIC ACID
     Route: 048
  13. NEUQUINON [Concomitant]
     Active Substance: DIETARY SUPPLEMENT\UBIDECARENONE
     Route: 048
  14. TOCOPHEROL [Concomitant]
     Active Substance: TOCOPHEROL
     Route: 048

REACTIONS (4)
  - Hyperammonaemia [Recovering/Resolving]
  - Enterocolitis [Recovering/Resolving]
  - Enteritis infectious [Recovered/Resolved]
  - Metabolic acidosis [Recovering/Resolving]

NARRATIVE: CASE EVENT DATE: 20200806
